FAERS Safety Report 13858666 (Version 1)
Quarter: 2017Q3

REPORT INFORMATION
  Report Type: Spontaneous
  Country: US (occurrence: US)
  Receive Date: 20170811
  Receipt Date: 20170811
  Transmission Date: 20171127
  Serious: No
  Sender: FDA-Public Use
  Company Number: US-PERRIGO-16US019192

PATIENT
  Sex: Male
  Weight: 83.9 kg

DRUGS (1)
  1. LORATADINE. [Suspect]
     Active Substance: LORATADINE
     Indication: UPPER-AIRWAY COUGH SYNDROME
     Dosage: 10 MG, PRN
     Route: 048
     Dates: start: 2011

REACTIONS (3)
  - Off label use [Unknown]
  - Somnolence [Unknown]
  - Fatigue [Unknown]

NARRATIVE: CASE EVENT DATE: 2011
